FAERS Safety Report 20769470 (Version 2)
Quarter: 2022Q2

REPORT INFORMATION
  Report Type: Spontaneous
  Country: US (occurrence: US)
  Receive Date: 20220429
  Receipt Date: 20220517
  Transmission Date: 20220721
  Serious: No
  Sender: FDA-Public Use
  Company Number: US-JNJFOC-20220455402

PATIENT
  Age: 83 Year
  Sex: Female
  Weight: 79.450 kg

DRUGS (1)
  1. WOMENS ROGAINE UNSCENTED [Suspect]
     Active Substance: MINOXIDIL
     Indication: Product used for unknown indication
     Dosage: FILL THE CAP OFF
     Route: 061
     Dates: start: 202202, end: 202205

REACTIONS (4)
  - Application site pain [Recovered/Resolved]
  - Hair texture abnormal [Recovered/Resolved]
  - Inappropriate schedule of product administration [Unknown]
  - Incorrect dose administered [Unknown]

NARRATIVE: CASE EVENT DATE: 20220201
